FAERS Safety Report 23504011 (Version 1)
Quarter: 2024Q1

REPORT INFORMATION
  Report Type: Spontaneous
  Country: US (occurrence: None)
  Receive Date: 20240208
  Receipt Date: 20240208
  Transmission Date: 20240409
  Serious: Yes (Life-Threatening, Disabling)
  Sender: FDA-Public Use
  Company Number: None

PATIENT
  Age: 48 Year
  Sex: Female
  Weight: 65.25 kg

DRUGS (8)
  1. SEMAGLUTIDE [Suspect]
     Active Substance: SEMAGLUTIDE
     Indication: Weight decreased
     Dosage: OTHER QUANTITY : .25 INJECTION(S);?OTHER FREQUENCY : WEEKLY;?OTHER ROUTE : INJECTED AT FLANKS;?
     Route: 050
     Dates: start: 20231014, end: 20240112
  2. Omega 3 [Concomitant]
  3. Probiotic [Concomitant]
  4. Vitamin C [Concomitant]
  5. MAGNESIUM [Concomitant]
  6. Vitamin D [Concomitant]
  7. K2 [Concomitant]
  8. B Comolex [Concomitant]

REACTIONS (4)
  - Panic attack [None]
  - Suicidal ideation [None]
  - Depression [None]
  - Dissociation [None]

NARRATIVE: CASE EVENT DATE: 20231209
